APPROVED DRUG PRODUCT: TOPIRAMATE
Active Ingredient: TOPIRAMATE
Strength: 150MG
Dosage Form/Route: CAPSULE, EXTENDED RELEASE;ORAL
Application: A218695 | Product #004 | TE Code: AB2
Applicant: AMTA LABS LTD
Approved: Dec 3, 2024 | RLD: No | RS: No | Type: RX